FAERS Safety Report 4962163-9 (Version None)
Quarter: 2006Q2

REPORT INFORMATION
  Report Type: 
  Country: None (occurrence: None)
  Receive Date: 20060404
  Receipt Date: 20050509
  Transmission Date: 20061013
  Serious: Yes (Hospitalization)
  Sender: FDA-Public Use
  Company Number: US-MERCK-0505USA01159

PATIENT
  Age: 55 Year
  Sex: Male
  Weight: 73 kg

DRUGS (2)
  1. VIOXX [Suspect]
     Indication: ARTHRITIS
     Route: 048
     Dates: start: 20020708, end: 20041017
  2. VIOXX [Suspect]
     Route: 048
     Dates: start: 20020708, end: 20041017

REACTIONS (8)
  - CEREBROVASCULAR ACCIDENT [None]
  - CHEST PAIN [None]
  - CHRONIC OBSTRUCTIVE PULMONARY DISEASE [None]
  - EMPHYSEMA [None]
  - HEART RATE IRREGULAR [None]
  - LUNG NEOPLASM [None]
  - RENAL CYST [None]
  - TRANSIENT ISCHAEMIC ATTACK [None]
